FAERS Safety Report 8836404 (Version 1)
Quarter: 2012Q4

REPORT INFORMATION
  Report Type: 
  Country: US (occurrence: US)
  Receive Date: 20121011
  Receipt Date: 20121011
  Transmission Date: 20130627
  Serious: No
  Sender: FDA-Public Use
  Company Number: US-NOVEN-12US005265

PATIENT
  Sex: Male

DRUGS (2)
  1. FENTANYL [Suspect]
     Indication: INTERVERTEBRAL DISC DEGENERATION
     Dosage: 100 ug/hr, UNK
     Route: 062
  2. FENTANYL [Suspect]
     Dosage: 100 ug/hr, UNK
     Route: 062

REACTIONS (3)
  - Hyperhidrosis [Not Recovered/Not Resolved]
  - Drug administration error [Not Recovered/Not Resolved]
  - Product quality issue [Not Recovered/Not Resolved]
